FAERS Safety Report 7465161-9 (Version None)
Quarter: 2011Q2

REPORT INFORMATION
  Report Type: 
  Country: None (occurrence: None)
  Receive Date: 20110509
  Receipt Date: 20110505
  Transmission Date: 20111010
  Serious: Yes (Life-Threatening, Hospitalization)
  Sender: FDA-Public Use
  Company Number: US-B.I. PHARMACEUTICALS,INC./RIDGEFIELD-2011-BP-08907BP

PATIENT
  Age: 79 Year
  Sex: Male

DRUGS (6)
  1. ENTERIC [Concomitant]
     Dosage: 81 MG
  2. IMDUR [Concomitant]
     Dosage: 60 MG
  3. VYTORIN [Concomitant]
  4. PROTONIX [Concomitant]
  5. PRADAXA [Suspect]
     Indication: ATRIAL FIBRILLATION
     Dosage: 300 MG
     Route: 048
     Dates: start: 20101201, end: 20110317
  6. RYTHMOL [Concomitant]

REACTIONS (2)
  - GASTROINTESTINAL HAEMORRHAGE [None]
  - ARTERIOVENOUS MALFORMATION [None]
